FAERS Safety Report 6735115-6 (Version None)
Quarter: 2010Q2

REPORT INFORMATION
  Report Type: 
  Country: None (occurrence: None)
  Receive Date: 20100518
  Receipt Date: 20100518
  Transmission Date: 20101027
  Serious: Yes (Other)
  Sender: FDA-Public Use
  Company Number: None

PATIENT
  Sex: Male
  Weight: 27.4 kg

DRUGS (1)
  1. OXCARBAZEPINE [Suspect]
     Indication: COMPLEX PARTIAL SEIZURES
     Dosage: 8ML BID PO
     Route: 048
     Dates: start: 20100209, end: 20100516

REACTIONS (3)
  - CONVULSION [None]
  - INSOMNIA [None]
  - PRODUCT SUBSTITUTION ISSUE [None]
